FAERS Safety Report 7049069-9 (Version None)
Quarter: 2010Q4

REPORT INFORMATION
  Report Type: 
  Country: None (occurrence: None)
  Receive Date: 20101018
  Receipt Date: 20101011
  Transmission Date: 20110411
  Serious: Yes (Other)
  Sender: FDA-Public Use
  Company Number: US-ABBOTT-10P-163-0675232-00

PATIENT
  Age: 60 Year
  Sex: Female
  Weight: 95.34 kg

DRUGS (10)
  1. SYNTHROID [Suspect]
     Indication: HYPOTHYROIDISM
     Dosage: 137 MCG TWO TABLETS FOIR 2 DAYS AND HALF TAB FOR NEXT 5 DAYS IN A WEEK
     Route: 048
  2. LYRICA [Suspect]
     Indication: NEURALGIA
     Route: 048
     Dates: start: 20100801
  3. LYRICA [Suspect]
     Route: 048
  4. PREDNISONE [Suspect]
     Indication: POLYMYALGIA RHEUMATICA
     Dosage: 10 MG MORNINGS 5 MG IN EVENING
     Route: 048
     Dates: start: 20070101
  5. LISINOPRIL/HYDROCHLOORTHIAZIDE [Suspect]
     Indication: PRODUCT USED FOR UNKNOWN INDICATION
     Route: 048
  6. PAROXETINE MESILATE [Suspect]
     Indication: FATIGUE
     Route: 048
  7. LASIX [Suspect]
     Indication: FLUID RETENTION
     Route: 048
  8. FOSAMAX [Suspect]
     Indication: CALCIUM DEFICIENCY
     Dosage: WEEKLY
     Route: 048
  9. REQUIP [Suspect]
     Indication: HYPOTHYROIDISM
     Route: 048
  10. LOVASTATIN [Suspect]
     Indication: PRODUCT USED FOR UNKNOWN INDICATION
     Route: 055

REACTIONS (8)
  - ACTIVITIES OF DAILY LIVING IMPAIRED [None]
  - DIZZINESS [None]
  - DYSKINESIA [None]
  - FEAR [None]
  - GAIT DISTURBANCE [None]
  - SYSTEMIC LUPUS ERYTHEMATOSUS [None]
  - THINKING ABNORMAL [None]
  - TREMOR [None]
